FAERS Safety Report 17557472 (Version 1)
Quarter: 2020Q1

REPORT INFORMATION
  Report Type: Spontaneous
  Country: US (occurrence: US)
  Receive Date: 20200318
  Receipt Date: 20200318
  Transmission Date: 20200409
  Serious: Yes (Other)
  Sender: FDA-Public Use
  Company Number: US-MYLANLABS-2020M1028602

PATIENT
  Age: 42 Year
  Sex: Female

DRUGS (4)
  1. ACICLOVIR [Suspect]
     Active Substance: ACYCLOVIR
     Dosage: 800 MILLIGRAM, QID
     Route: 048
  2. FIRDAPSE [Concomitant]
     Active Substance: AMIFAMPRIDINE
     Dosage: 20 MILLIGRAM, TID, 60 MG DAILY
  3. ACICLOVIR [Suspect]
     Active Substance: ACYCLOVIR
     Indication: VARICELLA
     Dosage: 200 MILLIGRAM, TID (3X/DAY)
     Route: 065
     Dates: start: 201911
  4. FIRDAPSE [Concomitant]
     Active Substance: AMIFAMPRIDINE
     Indication: PRODUCT USED FOR UNKNOWN INDICATION
     Dosage: UNK

REACTIONS (10)
  - Cough [Recovering/Resolving]
  - Skin lesion [Recovering/Resolving]
  - Urticaria [Recovering/Resolving]
  - Anaphylactic reaction [Recovering/Resolving]
  - Influenza [Recovering/Resolving]
  - Burning sensation [Recovering/Resolving]
  - Drug ineffective [Recovering/Resolving]
  - Upper respiratory tract infection [Recovering/Resolving]
  - Dyspnoea [Recovering/Resolving]
  - Rash [Recovering/Resolving]

NARRATIVE: CASE EVENT DATE: 20191129
